FAERS Safety Report 8416859-7 (Version None)
Quarter: 2012Q2

REPORT INFORMATION
  Report Type: 
  Country: None (occurrence: None)
  Receive Date: 20120606
  Receipt Date: 20120525
  Transmission Date: 20120825
  Serious: Yes (Other)
  Sender: FDA-Public Use
  Company Number: FR-BRISTOL-MYERS SQUIBB COMPANY-16638447

PATIENT
  Age: 43 Year
  Sex: Male

DRUGS (4)
  1. TRUVADA [Interacting]
     Indication: HIV INFECTION
  2. PENTOXIFYLLINE [Interacting]
     Indication: PULMONARY EMBOLISM
     Dosage: 20MG SCORED TABS INCREASED TO 25MG ON 07DEC11 19DEC11,30MG 09JAN12,35MG
     Route: 048
     Dates: start: 20111201
  3. REYATAZ [Suspect]
     Indication: HIV INFECTION
     Route: 048
     Dates: start: 20080121
  4. NORVIR [Interacting]
     Indication: HIV INFECTION
     Dosage: 100MG FILM COATED TABS
     Route: 048
     Dates: start: 20070924

REACTIONS (2)
  - DRUG INTERACTION [None]
  - INTERNATIONAL NORMALISED RATIO DECREASED [None]
